FAERS Safety Report 13519501 (Version 2)
Quarter: 2017Q3

REPORT INFORMATION
  Report Type: Spontaneous
  Country: US (occurrence: US)
  Receive Date: 20170505
  Receipt Date: 20170810
  Transmission Date: 20171127
  Serious: No
  Sender: FDA-Public Use
  Company Number: US-009507513-1705USA002214

PATIENT
  Age: 18 Year
  Sex: Female
  Weight: 101.95 kg

DRUGS (4)
  1. NEXPLANON [Suspect]
     Active Substance: ETONOGESTREL
     Indication: CONTRACEPTION
     Dosage: 1 ROD/ ONCE PER 3 YEARS
     Route: 059
     Dates: start: 20151001, end: 20170502
  2. PROAIR HFA [Concomitant]
     Active Substance: ALBUTEROL SULFATE
  3. COLACE [Concomitant]
     Active Substance: DOCUSATE SODIUM
  4. NEXPLANON [Suspect]
     Active Substance: ETONOGESTREL
     Dosage: 1 DF, DOSE FREQUENCY: ONE ROD/ ONCE PER 3 YEARS
     Route: 059
     Dates: start: 20170502

REACTIONS (6)
  - Menstruation irregular [Recovering/Resolving]
  - Difficulty removing drug implant [Recovered/Resolved]
  - Vaginal haemorrhage [Recovering/Resolving]
  - Weight increased [Unknown]
  - Device breakage [Recovered/Resolved]
  - Device deployment issue [Recovered/Resolved]

NARRATIVE: CASE EVENT DATE: 20151001
